FAERS Safety Report 16205523 (Version 1)
Quarter: 2019Q2

REPORT INFORMATION
  Report Type: Spontaneous
  Country: DK (occurrence: DK)
  Receive Date: 20190417
  Receipt Date: 20190417
  Transmission Date: 20190711
  Serious: Yes (Other)
  Sender: FDA-Public Use
  Company Number: DK-TEVA-2019-DK-1037301

PATIENT
  Age: 52 Year
  Sex: Male

DRUGS (15)
  1. CIPRAMIL (CITALOPRAM HYDROBROMIDE) [Suspect]
     Active Substance: CITALOPRAM HYDROBROMIDE
     Indication: ANXIETY
     Dosage: 20 MILLIGRAM DAILY; STRENGTH: UNKNOWN.
     Route: 048
     Dates: start: 201201, end: 2012
  2. STRATTERA [Concomitant]
     Active Substance: ATOMOXETINE HYDROCHLORIDE
     Indication: ATTENTION DEFICIT/HYPERACTIVITY DISORDER
     Dosage: 10 MILLIGRAM DAILY; DOSAGE: INCREASED TO 20 MG 08JUN2012, STRENGTH: UNKNOWN.
     Route: 048
     Dates: start: 20120531
  3. DIAZEPAM. [Suspect]
     Active Substance: DIAZEPAM
     Indication: ANXIETY
     Dosage: 10 MILLIGRAM DAILY; DOSAGE: THROUGH 2013 AND 2014, 6 MG DAILY, STRENGTH: UNKNOWN.
     Route: 048
     Dates: start: 201211
  4. LYRICA [Concomitant]
     Active Substance: PREGABALIN
     Indication: PRODUCT USED FOR UNKNOWN INDICATION
     Dosage: 75 MILLIGRAM DAILY; STRENGTH: UNKNOWN.
     Route: 048
     Dates: start: 20160427
  5. IMOCLONE [Concomitant]
     Active Substance: ZOPICLONE
     Indication: PRODUCT USED FOR UNKNOWN INDICATION
     Dosage: 7.5 MILLIGRAM DAILY; STRENGTH: UNKNOWN
     Route: 048
     Dates: start: 201210
  6. MOTIRON [Concomitant]
     Active Substance: METHYLPHENIDATE HYDROCHLORIDE
     Indication: PRODUCT USED FOR UNKNOWN INDICATION
     Dosage: STRENGTH: UNKNOWN DOSAGE: RISING TO 20 MG
     Dates: start: 201611
  7. RISPERIDONE. [Concomitant]
     Active Substance: RISPERIDONE
     Indication: PRODUCT USED FOR UNKNOWN INDICATION
     Dosage: 1 MILLIGRAM DAILY; STRENGTH: UNKNOWN.
     Route: 048
     Dates: start: 20160602
  8. NEULACTIL [Concomitant]
     Active Substance: PERICIAZINE
     Indication: PRODUCT USED FOR UNKNOWN INDICATION
     Dosage: 2.5 MG; STRENGTH: UNKNOWN
     Route: 048
     Dates: start: 201201
  9. OLANZAPINE. [Concomitant]
     Active Substance: OLANZAPINE
     Indication: PRODUCT USED FOR UNKNOWN INDICATION
     Dosage: 2.5 MILLIGRAM DAILY; STRENGTH: UNKNOWN
     Route: 048
     Dates: start: 20120807, end: 2015
  10. MEDIKINET [Concomitant]
     Active Substance: METHYLPHENIDATE
     Indication: PRODUCT USED FOR UNKNOWN INDICATION
     Dosage: 20 MILLIGRAM DAILY; STRENGTH:UNKNOWN
     Route: 048
  11. ALOPAM [Suspect]
     Active Substance: OXAZEPAM
     Indication: ANXIETY
     Dosage: 45 MG
     Route: 048
     Dates: start: 2012
  12. SEROQUEL [Concomitant]
     Active Substance: QUETIAPINE FUMARATE
     Indication: PRODUCT USED FOR UNKNOWN INDICATION
     Dosage: 100 MILLIGRAM DAILY; DOSAGE: 100 MG DAILY AND 50 MG IF NEEDED MAX 2 TIMES DAILY, NON-STREET: UNKNOWN
     Route: 048
     Dates: start: 201202
  13. MIRTAZAPINE. [Concomitant]
     Active Substance: MIRTAZAPINE
     Indication: PRODUCT USED FOR UNKNOWN INDICATION
     Dosage: 30 MILLIGRAM DAILY; STRENGTH: UNKNOWN
     Route: 048
     Dates: start: 2012, end: 20120320
  14. QUETIAPINE. [Concomitant]
     Active Substance: QUETIAPINE
     Indication: PRODUCT USED FOR UNKNOWN INDICATION
     Dosage: DOSAGE: UNKNOWN, STRENGTH: UNKNOWN
     Route: 048
     Dates: start: 201211
  15. MIANSERIN [Concomitant]
     Active Substance: MIANSERIN
     Indication: PRODUCT USED FOR UNKNOWN INDICATION
     Dosage: 10 MILLIGRAM DAILY; STRENGTH: UNKNOWN
     Route: 048
     Dates: start: 20120320

REACTIONS (6)
  - Neck pain [Unknown]
  - Headache [Unknown]
  - Weight increased [Unknown]
  - Dependence [Unknown]
  - Back pain [Unknown]
  - Salivary hypersecretion [Unknown]
